FAERS Safety Report 5214391-5 (Version None)
Quarter: 2007Q1

REPORT INFORMATION
  Report Type: 
  Country: None (occurrence: None)
  Receive Date: 20070122
  Receipt Date: 20070110
  Transmission Date: 20070707
  Serious: Yes (Hospitalization)
  Sender: FDA-Public Use
  Company Number: FR-AMGEN-UK206487

PATIENT
  Age: 34 Year
  Sex: Female

DRUGS (2)
  1. ARANESP [Suspect]
     Route: 065
  2. NEORECORMON [Concomitant]
     Route: 065

REACTIONS (1)
  - AUTOIMMUNE HEPATITIS [None]
